FAERS Safety Report 26190547 (Version 1)
Quarter: 2025Q4

REPORT INFORMATION
  Report Type: Spontaneous
  Country: US (occurrence: US)
  Receive Date: 20251223
  Receipt Date: 20251223
  Transmission Date: 20260117
  Serious: Yes (Other)
  Sender: STRIDES
  Company Number: US-STRIDES ARCOLAB LIMITED-2025SP011657

PATIENT
  Sex: Female

DRUGS (5)
  1. METHOTREXATE [Suspect]
     Active Substance: METHOTREXATE
     Indication: Chronic cutaneous lupus erythematosus
     Dosage: UNK
     Route: 065
  2. ACITRETIN [Suspect]
     Active Substance: ACITRETIN
     Indication: Chronic cutaneous lupus erythematosus
     Dosage: UNK
     Route: 065
  3. TRIAMCINOLONE [Concomitant]
     Active Substance: TRIAMCINOLONE
     Indication: Chronic cutaneous lupus erythematosus
     Dosage: UNK
     Route: 026
  4. HYDROXYCHLOROQUINE [Concomitant]
     Active Substance: HYDROXYCHLOROQUINE
     Indication: Chronic cutaneous lupus erythematosus
     Dosage: 200 MILLIGRAM, BID
     Route: 065
  5. FLUOCINOLONE [Concomitant]
     Active Substance: FLUOCINOLONE
     Indication: Chronic cutaneous lupus erythematosus
     Dosage: UNK, AS NEEDED
     Route: 065

REACTIONS (2)
  - Therapy non-responder [Unknown]
  - Off label use [Unknown]
